FAERS Safety Report 8200088-6 (Version None)
Quarter: 2012Q1

REPORT INFORMATION
  Report Type: 
  Country: None (occurrence: None)
  Receive Date: 20120306
  Receipt Date: 20120227
  Transmission Date: 20120608
  Serious: Yes (Other)
  Sender: FDA-Public Use
  Company Number: 2012MA002641

PATIENT
  Age: 74 Year
  Sex: Male

DRUGS (2)
  1. FEVERALL [Suspect]
     Dosage: 1 G;QID
  2. WARFARIN SODIUM [Suspect]

REACTIONS (3)
  - INTERNATIONAL NORMALISED RATIO INCREASED [None]
  - COAGULATION FACTOR VII LEVEL DECREASED [None]
  - DRUG INTERACTION [None]
